FAERS Safety Report 18882383 (Version 1)
Quarter: 2021Q1

REPORT INFORMATION
  Report Type: Spontaneous
  Country: US (occurrence: US)
  Receive Date: 20210211
  Receipt Date: 20210211
  Transmission Date: 20210420
  Serious: No
  Sender: FDA-Public Use
  Company Number: US-PERRIGO-20US005287

PATIENT
  Age: 33 Year
  Sex: Female
  Weight: 118.37 kg

DRUGS (2)
  1. FIBER [Concomitant]
     Active Substance: PSYLLIUM HUSK
     Indication: SUPPLEMENTATION THERAPY
     Dosage: UNK, UNK
     Route: 048
     Dates: start: 202001
  2. CETIRIZINE HYDROCHLORIDE. [Suspect]
     Active Substance: CETIRIZINE HYDROCHLORIDE
     Indication: WRONG PRODUCT ADMINISTERED
     Dosage: 20 MG, SINGLE
     Route: 048
     Dates: start: 20200408, end: 20200408

REACTIONS (1)
  - Wrong product administered [Recovered/Resolved]

NARRATIVE: CASE EVENT DATE: 20200408
